FAERS Safety Report 5347408-8 (Version None)
Quarter: 2007Q2

REPORT INFORMATION
  Report Type: 
  Country: None (occurrence: None)
  Receive Date: 20070503
  Receipt Date: 20061007
  Transmission Date: 20071010
  Serious: Yes (Other)
  Sender: FDA-Public Use
  Company Number: PHEH2006US12724

PATIENT
  Age: 70 Year
  Sex: Female
  Weight: 102 kg

DRUGS (1)
  1. LAMISIL [Suspect]
     Indication: BODY TINEA
     Dosage: BID, TOPICAL
     Route: 061
     Dates: start: 20061003, end: 20061004

REACTIONS (5)
  - HYPERSENSITIVITY [None]
  - HYPOAESTHESIA ORAL [None]
  - LIP SWELLING [None]
  - PRURITUS [None]
  - RASH [None]
